FAERS Safety Report 7638497-6 (Version None)
Quarter: 2011Q3

REPORT INFORMATION
  Report Type: 
  Country: None (occurrence: None)
  Receive Date: 20110727
  Receipt Date: 20110712
  Transmission Date: 20111222
  Serious: Yes (Hospitalization, Other)
  Sender: FDA-Public Use
  Company Number: PHHY2011BR63407

PATIENT
  Sex: Female

DRUGS (1)
  1. RASILEZ HCT [Suspect]
     Dosage: 1 DF, UNK

REACTIONS (7)
  - MALAISE [None]
  - DIARRHOEA [None]
  - DYSPNOEA [None]
  - CHOLELITHIASIS [None]
  - HEADACHE [None]
  - VOMITING [None]
  - ASTHENIA [None]
